FAERS Safety Report 5755162-0 (Version None)
Quarter: 2008Q2

REPORT INFORMATION
  Report Type: 
  Country: None (occurrence: None)
  Receive Date: 20080529
  Receipt Date: 20080529
  Transmission Date: 20081010
  Serious: Yes (Other)
  Sender: FDA-Public Use
  Company Number: None

PATIENT
  Sex: Male
  Weight: 39.9165 kg

DRUGS (5)
  1. SINGULAIR [Suspect]
     Indication: BRONCHIAL HYPERREACTIVITY
     Dosage: 5 MG QD PO
     Route: 048
     Dates: start: 20011101
  2. SINGULAIR [Suspect]
     Indication: RHINITIS ALLERGIC
     Dosage: 5 MG QD PO
     Route: 048
     Dates: start: 20011101
  3. STRATTERA [Concomitant]
  4. LAMICTAL [Concomitant]
  5. ZYRTEC [Concomitant]

REACTIONS (1)
  - ABNORMAL BEHAVIOUR [None]
